FAERS Safety Report 15862304 (Version 1)
Quarter: 2019Q1

REPORT INFORMATION
  Report Type: Spontaneous
  Country: US (occurrence: US)
  Receive Date: 20190124
  Receipt Date: 20190124
  Transmission Date: 20190417
  Serious: Yes (Death)
  Sender: FDA-Public Use
  Company Number: US-PERRIGO-19US000736

PATIENT
  Age: 49 Year
  Sex: Female

DRUGS (11)
  1. CLOZAPINE. [Suspect]
     Active Substance: CLOZAPINE
     Indication: COMPLETED SUICIDE
     Dosage: UNK
     Route: 048
  2. CLONAZEPAM. [Suspect]
     Active Substance: CLONAZEPAM
     Indication: COMPLETED SUICIDE
     Dosage: UNK
     Route: 048
  3. METHADONE [Suspect]
     Active Substance: METHADONE HYDROCHLORIDE
     Indication: COMPLETED SUICIDE
     Dosage: UNK
     Route: 048
  4. PROPRANOLOL [Suspect]
     Active Substance: PROPRANOLOL HYDROCHLORIDE
     Indication: COMPLETED SUICIDE
     Dosage: UNK
     Route: 048
  5. ZOLPIDEM [Suspect]
     Active Substance: ZOLPIDEM\ZOLPIDEM TARTRATE
     Indication: COMPLETED SUICIDE
     Dosage: UNK
     Route: 048
  6. MIRTAZAPINE. [Suspect]
     Active Substance: MIRTAZAPINE
     Indication: COMPLETED SUICIDE
     Dosage: UNK
     Route: 048
  7. THIAMINE. [Suspect]
     Active Substance: THIAMINE
     Indication: COMPLETED SUICIDE
     Dosage: UNK
     Route: 048
  8. MELATONIN [Suspect]
     Active Substance: MELATONIN
     Indication: COMPLETED SUICIDE
     Dosage: UNK
     Route: 048
  9. LORATADINE. [Suspect]
     Active Substance: LORATADINE
     Indication: COMPLETED SUICIDE
     Dosage: UNK
     Route: 048
  10. LITHIUM. [Suspect]
     Active Substance: LITHIUM
     Indication: COMPLETED SUICIDE
     Dosage: UNK
     Route: 048
  11. BENZTROPINE. [Suspect]
     Active Substance: BENZTROPINE
     Indication: COMPLETED SUICIDE
     Dosage: UNK
     Route: 048

REACTIONS (1)
  - Death [Fatal]
